FAERS Safety Report 5737146-1 (Version None)
Quarter: 2008Q2

REPORT INFORMATION
  Report Type: 
  Country: None (occurrence: None)
  Receive Date: 20080514
  Receipt Date: 20080505
  Transmission Date: 20081010
  Serious: Yes (Other)
  Sender: FDA-Public Use
  Company Number: NL-NOVOPROD-263721

PATIENT
  Sex: Female
  Weight: 56.5 kg

DRUGS (2)
  1. NOVORAPID FLEXPEN [Suspect]
     Indication: TYPE 1 DIABETES MELLITUS
     Dosage: 22-24 IU, QD
     Route: 058
     Dates: start: 20070419
  2. INSULATARD [Suspect]
     Indication: TYPE 1 DIABETES MELLITUS
     Dosage: 6 IU, QD
     Route: 058
     Dates: start: 20060901

REACTIONS (6)
  - COMPLICATION OF DELIVERY [None]
  - DRUG EXPOSURE DURING PREGNANCY [None]
  - HYPOGLYCAEMIA [None]
  - INDUCED LABOUR [None]
  - INTRA-UTERINE DEATH [None]
  - PREGNANCY [None]
